FAERS Safety Report 5280187-1 (Version None)
Quarter: 2007Q1

REPORT INFORMATION
  Report Type: 
  Country: None (occurrence: None)
  Receive Date: 20070326
  Receipt Date: 20070326
  Transmission Date: 20070707
  Serious: Yes (Other)
  Sender: FDA-Public Use
  Company Number: None

PATIENT
  Age: 54 Year
  Sex: Male
  Weight: 106.5953 kg

DRUGS (1)
  1. HYDROXYZINE [Suspect]
     Indication: ANXIETY
     Dosage: 75 MG 4 TIMES PER DAY PO
     Route: 048
     Dates: start: 20070310, end: 20070323

REACTIONS (9)
  - ANXIETY [None]
  - CONDITION AGGRAVATED [None]
  - CONFUSIONAL STATE [None]
  - COORDINATION ABNORMAL [None]
  - DEPERSONALISATION [None]
  - DRUG INEFFECTIVE [None]
  - FATIGUE [None]
  - MUSCULAR WEAKNESS [None]
  - PANIC ATTACK [None]
